FAERS Safety Report 20681797 (Version 1)
Quarter: 2022Q2

REPORT INFORMATION
  Report Type: Spontaneous
  Country: CA (occurrence: CA)
  Receive Date: 20220407
  Receipt Date: 20220407
  Transmission Date: 20220721
  Serious: Yes (Life-Threatening, Disabling, Other)
  Sender: FDA-Public Use
  Company Number: CA-SUN PHARMACEUTICAL INDUSTRIES LTD-2022R1-331628

PATIENT
  Age: 23 Year
  Sex: Female

DRUGS (2)
  1. BUPROPION HYDROCHLORIDE [Suspect]
     Active Substance: BUPROPION HYDROCHLORIDE
     Indication: Seasonal affective disorder
     Dosage: 1 DOSAGE FORM, QD
     Route: 048
  2. BUPROPION HYDROCHLORIDE [Suspect]
     Active Substance: BUPROPION HYDROCHLORIDE
     Indication: Depression

REACTIONS (15)
  - Agitation [Unknown]
  - Crying [Unknown]
  - Depression [Unknown]
  - Dizziness [Unknown]
  - Feeling abnormal [Unknown]
  - Headache [Unknown]
  - Intrusive thoughts [Unknown]
  - Irritability [Unknown]
  - Mood swings [Unknown]
  - Nausea [Unknown]
  - Palpitations [Unknown]
  - Panic attack [Unknown]
  - Sedation [Unknown]
  - Suicidal ideation [Unknown]
  - Tremor [Unknown]
